FAERS Safety Report 4975229-4 (Version None)
Quarter: 2006Q2

REPORT INFORMATION
  Report Type: 
  Country: None (occurrence: None)
  Receive Date: 20060417
  Receipt Date: 20060417
  Transmission Date: 20061013
  Serious: Yes (Other)
  Sender: FDA-Public Use
  Company Number: None

PATIENT
  Age: 66 Year
  Sex: Male
  Weight: 90.7194 kg

DRUGS (1)
  1. COSOPT [Suspect]
     Indication: GLAUCOMA
     Dosage: 1 DROP TO RIGHT EYE  BID  OPHTHALMIC
     Route: 047
     Dates: start: 20040105, end: 20060415

REACTIONS (8)
  - APPLICATION SITE IRRITATION [None]
  - APPLICATION SITE PAIN [None]
  - CAUSTIC INJURY [None]
  - ERYTHEMA OF EYELID [None]
  - EYE IRRITATION [None]
  - EYELID OEDEMA [None]
  - OCULAR HYPERAEMIA [None]
  - VISION BLURRED [None]
